FAERS Safety Report 7720407-4 (Version None)
Quarter: 2011Q3

REPORT INFORMATION
  Report Type: 
  Country: None (occurrence: None)
  Receive Date: 20110830
  Receipt Date: 20110830
  Transmission Date: 20111222
  Serious: No
  Sender: FDA-Public Use
  Company Number: None

PATIENT
  Age: 29 Year
  Sex: Female

DRUGS (16)
  1. NIFEDIPINE [Concomitant]
  2. OMEPRAZOLE [Concomitant]
  3. RITONAVIR [Concomitant]
  4. ATROVENT [Concomitant]
  5. INSULIN [Concomitant]
  6. DULOXETIME HYDROCHLORIDE [Concomitant]
  7. FOSAMPRENAVIR [Concomitant]
  8. PAROXETINE HCL [Concomitant]
  9. TRAZODONE [Concomitant]
  10. DIDANOSINE [Concomitant]
  11. LAMIVUDINE [Concomitant]
  12. TOPIRAMATE [Suspect]
     Dates: start: 20041201, end: 20060614
  13. ATAZANAVIR [Concomitant]
  14. METFORMIN [Concomitant]
  15. BUPROPION HCL [Concomitant]
  16. METOPROLOL TARTRATE [Concomitant]

REACTIONS (14)
  - ASPARTATE AMINOTRANSFERASE INCREASED [None]
  - BLOOD ALKALINE PHOSPHATASE INCREASED [None]
  - ECONOMIC PROBLEM [None]
  - SYNCOPE [None]
  - ALANINE AMINOTRANSFERASE INCREASED [None]
  - LIVER INJURY [None]
  - CHROMATURIA [None]
  - ABDOMINAL PAIN [None]
  - PRURITUS [None]
  - FATIGUE [None]
  - HEPATOTOXICITY [None]
  - INCORRECT DOSE ADMINISTERED [None]
  - NAUSEA [None]
  - VOMITING [None]
